FAERS Safety Report 18148538 (Version 1)
Quarter: 2020Q3

REPORT INFORMATION
  Report Type: Spontaneous
  Country: DE (occurrence: DE)
  Receive Date: 20200814
  Receipt Date: 20200814
  Transmission Date: 20201103
  Serious: Yes (Hospitalization, Other)
  Sender: FDA-Public Use
  Company Number: DE-TEVA-2020-DE-1813571

PATIENT
  Age: 49 Year
  Sex: Female
  Weight: 74 kg

DRUGS (8)
  1. NEULASTA [Suspect]
     Active Substance: PEGFILGRASTIM
     Indication: NEUTROPENIA
     Dosage: AFTER CHEMO
     Route: 058
  2. CYCLOPHOSPHAMIDE. [Suspect]
     Active Substance: CYCLOPHOSPHAMIDE
     Indication: BREAST CANCER
     Route: 065
  3. PACLITAXEL. [Suspect]
     Active Substance: PACLITAXEL
     Indication: BREAST CANCER
     Route: 065
  4. EPIRUBICIN [Suspect]
     Active Substance: EPIRUBICIN
     Indication: BREAST CANCER
     Route: 065
     Dates: start: 20200528, end: 20200528
  5. NEULASTA [Suspect]
     Active Substance: PEGFILGRASTIM
     Dosage: AFTER CHEMO
     Route: 058
  6. NEULASTA [Suspect]
     Active Substance: PEGFILGRASTIM
     Indication: PROPHYLAXIS
     Dosage: AFTER CHEMO
     Route: 058
  7. NEULASTA [Suspect]
     Active Substance: PEGFILGRASTIM
     Dosage: AFTER CHEMO
     Route: 058
  8. NEULASTA [Suspect]
     Active Substance: PEGFILGRASTIM
     Dosage: AFTER CHEMO
     Route: 058
     Dates: start: 20200529, end: 20200529

REACTIONS (3)
  - Therapeutic product effect decreased [Unknown]
  - Leukopenia [Recovered/Resolved]
  - Febrile neutropenia [Recovered/Resolved]

NARRATIVE: CASE EVENT DATE: 20200604
